FAERS Safety Report 14786711 (Version 7)
Quarter: 2018Q3

REPORT INFORMATION
  Report Type: Report from Study
  Country: US (occurrence: US)
  Receive Date: 20180420
  Receipt Date: 20180921
  Transmission Date: 20181010
  Serious: Yes (Hospitalization)
  Sender: FDA-Public Use
  Company Number: US-ACTELION-A-US2018-170797

PATIENT
  Age: 14 Month
  Sex: Female
  Weight: 12.7 kg

DRUGS (9)
  1. CIPROFLOXACIN. [Concomitant]
     Active Substance: CIPROFLOXACIN
  2. BUMEX [Concomitant]
     Active Substance: BUMETANIDE
  3. MULTIVITAMIN [Concomitant]
     Active Substance: VITAMINS
  4. REMODULIN [Concomitant]
     Active Substance: TREPROSTINIL
     Dosage: 82 NG/KG, PER MIN
     Route: 065
  5. REVATIO [Concomitant]
     Active Substance: SILDENAFIL CITRATE
  6. SPIRONOLACTONE. [Concomitant]
     Active Substance: SPIRONOLACTONE
  7. BETHKIS [Concomitant]
     Active Substance: TOBRAMYCIN
  8. BOSENTAN TABLET 32 MG PED US [Suspect]
     Active Substance: BOSENTAN
     Indication: PULMONARY HYPERTENSION
     Dosage: 24 MG, BID BY MOUTH OR BY J?TUBE
     Route: 050
  9. DIURAL [Concomitant]
     Active Substance: FUROSEMIDE

REACTIONS (8)
  - Vomiting [Unknown]
  - Unevaluable event [Unknown]
  - Bacterial infection [Unknown]
  - Heart rate increased [Unknown]
  - Diarrhoea [Unknown]
  - Weight decreased [Unknown]
  - Hospitalisation [Unknown]
  - Respiratory distress [Unknown]

NARRATIVE: CASE EVENT DATE: 20180815
